FAERS Safety Report 6590846-6 (Version None)
Quarter: 2010Q2

REPORT INFORMATION
  Report Type: 
  Country: None (occurrence: None)
  Receive Date: 20100212
  Receipt Date: 20090814
  Transmission Date: 20101027
  Serious: Yes (Hospitalization)
  Sender: FDA-Public Use
  Company Number: US-JNJFOC-20090805519

PATIENT
  Age: 12 Month
  Sex: Male
  Weight: 10.4327 kg

DRUGS (3)
  1. CONCENTRATED MOTRIN INFANTS DROPS [Suspect]
     Indication: PYREXIA
     Dosage: 75 MG, ORAL
     Route: 048
     Dates: start: 20090805, end: 20090806
  2. CORTISONE [Concomitant]
  3. BENADRYL [Suspect]

REACTIONS (1)
  - ANAPHYLACTIC SHOCK [None]
